FAERS Safety Report 17264010 (Version 1)
Quarter: 2020Q1

REPORT INFORMATION
  Report Type: Report from Study
  Country: US (occurrence: US)
  Receive Date: 20200113
  Receipt Date: 20200113
  Transmission Date: 20200409
  Serious: Yes (Death)
  Sender: FDA-Public Use
  Company Number: US-TAIHO ONCOLOGY  INC-EU-2020-00041

PATIENT
  Age: 90 Year
  Sex: Female
  Weight: 56.3 kg

DRUGS (1)
  1. LONSURF [Suspect]
     Active Substance: TIPIRACIL HYDROCHLORIDE\TRIFLURIDINE
     Indication: COLORECTAL CANCER METASTATIC
     Dosage: DAYS 1-5 AND 8-12 EVERY 2 WEEKS
     Route: 048
     Dates: start: 20180817

REACTIONS (1)
  - Death [Fatal]

NARRATIVE: CASE EVENT DATE: 20200102
